FAERS Safety Report 24712088 (Version 1)
Quarter: 2024Q4

REPORT INFORMATION
  Report Type: Spontaneous
  Country: CN (occurrence: CN)
  Receive Date: 20241209
  Receipt Date: 20241209
  Transmission Date: 20250115
  Serious: Yes (Hospitalization)
  Sender: PFIZER
  Company Number: CN-PFIZER INC-PV202400158063

PATIENT
  Age: 83 Year
  Sex: Female

DRUGS (1)
  1. TYGACIL [Suspect]
     Active Substance: TIGECYCLINE
     Indication: Skin infection
     Dosage: 50.000 MG, 2X/DAY
     Route: 041
     Dates: start: 20241103, end: 20241111

REACTIONS (3)
  - Ecchymosis [Recovering/Resolving]
  - Coagulopathy [Recovering/Resolving]
  - Blood fibrinogen decreased [Recovering/Resolving]

NARRATIVE: CASE EVENT DATE: 20241109
